FAERS Safety Report 13293117 (Version 2)
Quarter: 2017Q1

REPORT INFORMATION
  Report Type: Spontaneous
  Country: US (occurrence: US)
  Receive Date: 20170303
  Receipt Date: 20170316
  Transmission Date: 20170428
  Serious: Yes (Death, Hospitalization)
  Sender: FDA-Public Use
  Company Number: US-JNJFOC-20170105504

PATIENT
  Age: 78 Year
  Sex: Female
  Weight: 54.88 kg

DRUGS (1)
  1. XARELTO [Suspect]
     Active Substance: RIVAROXABAN
     Indication: DEEP VEIN THROMBOSIS
     Route: 048
     Dates: start: 20131210, end: 20131230

REACTIONS (2)
  - Internal haemorrhage [Unknown]
  - Ovarian cancer metastatic [Fatal]

NARRATIVE: CASE EVENT DATE: 20131230
